FAERS Safety Report 4416141-9 (Version None)
Quarter: 2004Q2

REPORT INFORMATION
  Report Type: 
  Country: None (occurrence: None)
  Receive Date: 20040623
  Receipt Date: 20040226
  Transmission Date: 20050107
  Serious: No
  Sender: FDA-Public Use
  Company Number: WAES 0402USA02042

PATIENT
  Sex: Female

DRUGS (2)
  1. INVANZ [Suspect]
     Dosage: IV
     Route: 042
     Dates: start: 20040219, end: 20040222
  2. ZANTAC [Concomitant]

REACTIONS (1)
  - INJECTION SITE RASH [None]
